FAERS Safety Report 7159440 (Version 2)
Quarter: 2012Q4

REPORT INFORMATION
  Report Type: Report from Study
  Country: NL (occurrence: NL)
  Receive Date: 20091027
  Receipt Date: 20120905
  Transmission Date: 20130627
  Serious: Yes (Death, Hospitalization)
  Sender: FDA-Public Use
  Company Number: NL-PFIZER INC-2009265112

PATIENT
  Age: 68 Year
  Sex: Male
  Weight: 80 kg

DRUGS (12)
  1. GENOTROPIN [Suspect]
     Indication: HYPOPITUITARISM
     Dosage: 0.3 mg, 1x/day
     Route: 058
     Dates: start: 200704, end: 20080822
  2. ACETYLSALICYLIC ACID [Concomitant]
     Dosage: 80 mg, 1x/day
     Route: 048
  3. NEURONTIN [Concomitant]
     Dosage: 100 mg, 1x/day
     Route: 048
  4. HYDROCORTISONE SODIUM SUCCINATE [Concomitant]
     Dosage: 20 mg, 1 tab AM, 1/2 tab 2xday
  5. EUTHYROX [Concomitant]
     Dosage: 150 ug, 1x/day
     Route: 048
  6. METOPROLOL TARTRATE [Concomitant]
     Dosage: 50 mg, 1x/day
     Route: 048
  7. OXAZEPAM [Concomitant]
     Dosage: 10 mg, as needed
     Route: 048
  8. PANTOZOL [Concomitant]
     Dosage: 40 mg, 1x/day
     Route: 048
  9. PARACETAMOL [Concomitant]
     Dosage: 500 mg, 5xday
     Route: 048
  10. TEMAZEPAM [Concomitant]
     Dosage: 20 mg, as needed
     Route: 048
  11. TRAMAGETIC [Concomitant]
     Dosage: 2/3 of 300mg tablet daily
     Route: 048
  12. TRAVATAN [Concomitant]
     Dosage: 1 ml, 1x/day
     Route: 047

REACTIONS (2)
  - Pituitary tumour benign [Not Recovered/Not Resolved]
  - Pneumonia [Fatal]
